FAERS Safety Report 4878958-6 (Version None)
Quarter: 2006Q1

REPORT INFORMATION
  Report Type: 
  Country: None (occurrence: None)
  Receive Date: 20060110
  Receipt Date: 20060110
  Transmission Date: 20060701
  Serious: No
  Sender: FDA-Public Use
  Company Number: None

PATIENT
  Age: 53 Year
  Sex: Female
  Weight: 55.7924 kg

DRUGS (2)
  1. TEGRETOL [Suspect]
     Indication: TRIGEMINAL NEURALGIA
     Dosage: 1000 MG /DAILY /CHEWABLE
     Dates: start: 20050701
  2. BIAXIN [Suspect]
     Indication: SINUSITIS
     Dosage: 1, 000 MG/DAILY/PILL
     Dates: start: 20051220, end: 20051221

REACTIONS (6)
  - CONVULSION [None]
  - DYSKINESIA [None]
  - EYE DISORDER [None]
  - EYE MOVEMENT DISORDER [None]
  - MUSCLE TWITCHING [None]
  - SOMNOLENCE [None]
